FAERS Safety Report 18565346 (Version 1)
Quarter: 2020Q4

REPORT INFORMATION
  Report Type: Spontaneous
  Country: FR (occurrence: FR)
  Receive Date: 20201201
  Receipt Date: 20201201
  Transmission Date: 20210114
  Serious: Yes (Other)
  Sender: FDA-Public Use
  Company Number: FR-MYLANLABS-2020M1097940

PATIENT
  Age: 36 Year
  Sex: Male
  Weight: 71 kg

DRUGS (10)
  1. PIPERACILLIN/TAZOBACTAM [Suspect]
     Active Substance: PIPERACILLIN SODIUM\TAZOBACTAM SODIUM
     Indication: OSTEITIS
     Dosage: 16 GRAM, QD
     Route: 042
     Dates: start: 20200921
  2. ACUPAN [Concomitant]
     Active Substance: NEFOPAM HYDROCHLORIDE
     Dosage: UNK
     Dates: start: 20200909
  3. PREGABALINE [Concomitant]
     Active Substance: PREGABALIN
     Dosage: 150 MILLIGRAM, QD
     Dates: start: 20200911, end: 20200929
  4. METHADONE [Concomitant]
     Active Substance: METHADONE HYDROCHLORIDE
     Dosage: 30 MILLIGRAM, QD
     Dates: start: 20200916
  5. CALCIPARINE [Concomitant]
     Active Substance: HEPARIN CALCIUM
     Dosage: UNK
  6. DOLIPRANE [Concomitant]
     Active Substance: ACETAMINOPHEN
     Dosage: 3 GRAM, QD
     Dates: start: 20200909
  7. DAPTOMYCINE [Concomitant]
     Active Substance: DAPTOMYCIN
     Dosage: 850 MILLIGRAM, QD
     Dates: start: 20200925
  8. CIPROFLOXACINE                     /00697201/ [Concomitant]
     Active Substance: CIPROFLOXACIN
     Dosage: 800 MILLIGRAM, QD
     Dates: start: 20200925
  9. CASPOFUNGINE [Concomitant]
     Active Substance: CASPOFUNGIN
     Dosage: 70 MILLIGRAM, QD
     Dates: start: 20200926
  10. NICOTINE. [Concomitant]
     Active Substance: NICOTINE
     Dosage: UNK
     Route: 062

REACTIONS (1)
  - Encephalopathy [Recovered/Resolved]

NARRATIVE: CASE EVENT DATE: 20200930
